FAERS Safety Report 7437013-1 (Version None)
Quarter: 2011Q2

REPORT INFORMATION
  Report Type: 
  Country: None (occurrence: None)
  Receive Date: 20110426
  Receipt Date: 20110412
  Transmission Date: 20111010
  Serious: Yes (Other)
  Sender: FDA-Public Use
  Company Number: US-ENDO PHARMACEUTICALS INC.-OPER20110086

PATIENT
  Sex: Male

DRUGS (2)
  1. OPANA ER [Suspect]
     Indication: PAIN
     Dosage: 480 MG
     Route: 048
  2. COCAINE [Suspect]
     Indication: DRUG ABUSE
     Dosage: UNKNOWN
     Route: 065

REACTIONS (2)
  - DRUG ABUSE [None]
  - DRUG SCREEN POSITIVE [None]
